FAERS Safety Report 8579968 (Version 3)
Quarter: 2014Q1

REPORT INFORMATION
  Report Type: Spontaneous
  Country: US (occurrence: US)
  Receive Date: 20120525
  Receipt Date: 20140306
  Transmission Date: 20141002
  Serious: Yes (Other)
  Sender: FDA-Public Use
  Company Number: US-PFIZER INC-2012122930

PATIENT
  Age: 38 Year
  Sex: Male
  Weight: 68.03 kg

DRUGS (35)
  1. LYRICA [Suspect]
     Indication: MIGRAINE
     Dosage: 200 MG, 3X/DAY
     Dates: start: 2010, end: 2013
  2. LYRICA [Interacting]
     Indication: BACK INJURY
     Dosage: 300 MG, 2X/DAY
  3. LYRICA [Interacting]
     Indication: LUMBAR RADICULOPATHY
  4. LYRICA [Interacting]
     Indication: BACK PAIN
  5. LYRICA [Interacting]
     Indication: MUSCULOSKELETAL PAIN
  6. LYRICA [Interacting]
     Indication: NECK PAIN
  7. LYRICA [Interacting]
     Indication: ARTHRALGIA
  8. LYRICA [Interacting]
     Indication: ARTHRALGIA
  9. LYRICA [Interacting]
     Indication: ARTHRALGIA
  10. LYRICA [Interacting]
     Indication: ARTHRALGIA
  11. LYRICA [Interacting]
     Indication: NERVE INJURY
  12. NEURONTIN [Suspect]
     Indication: BACK PAIN
     Dosage: 300 MG, 2X/DAY
     Dates: start: 201301
  13. NEURONTIN [Suspect]
     Indication: MUSCULOSKELETAL PAIN
  14. NEURONTIN [Suspect]
     Indication: NECK PAIN
  15. NEURONTIN [Suspect]
     Indication: ARTHRALGIA
  16. NEURONTIN [Suspect]
     Indication: ARTHRALGIA
  17. NEURONTIN [Suspect]
     Indication: ARTHRALGIA
  18. NEURONTIN [Suspect]
     Indication: ARTHRALGIA
  19. CELEBREX [Suspect]
     Indication: LUMBAR RADICULOPATHY
     Dosage: 200 MG, 2X/DAY
     Dates: end: 2012
  20. CELEBREX [Suspect]
     Indication: INTERVERTEBRAL DISC PROTRUSION
  21. CELEBREX [Suspect]
     Indication: BURSA INJURY
  22. CELEBREX [Suspect]
     Indication: JOINT INJURY
  23. CELEBREX [Suspect]
     Indication: PAIN
  24. ARTHROTEC [Interacting]
     Indication: LUMBAR RADICULOPATHY
     Dosage: 75 MG, 2X/DAY
     Dates: start: 2012, end: 2012
  25. ARTHROTEC [Interacting]
     Indication: INTERVERTEBRAL DISC PROTRUSION
     Dosage: 50 MG, 3X/DAY
     Dates: start: 2012, end: 2012
  26. ARTHROTEC [Interacting]
     Indication: BURSA INJURY
  27. ARTHROTEC [Interacting]
     Indication: JOINT INJURY
  28. METHOCARBAMOL [Suspect]
     Indication: LUMBAR RADICULOPATHY
     Dosage: 750 MG, 3X/DAY
  29. METHOCARBAMOL [Suspect]
     Indication: GASTROINTESTINAL PAIN
  30. LODINE XL [Suspect]
     Indication: NERVOUS SYSTEM DISORDER
     Dosage: 1200 MG, DAILY
  31. LODINE XL [Suspect]
     Indication: GASTROINTESTINAL PAIN
  32. LAMOTRIGINE [Concomitant]
     Indication: CONVULSION
     Dosage: 150 MG, 2X/DAY
  33. MORPHINE [Concomitant]
     Dosage: 60 MG, UNK
  34. PROPRANOLOL [Concomitant]
     Dosage: UNK
  35. LODINE [Concomitant]
     Indication: INFLAMMATION
     Dosage: 600 MG, 2X/DAY

REACTIONS (22)
  - Wheelchair user [Unknown]
  - Nervous system disorder [Unknown]
  - Gastrointestinal pain [Unknown]
  - Autoimmune disorder [Unknown]
  - Connective tissue disorder [Unknown]
  - Arthritis [Unknown]
  - Nerve injury [Unknown]
  - Drug ineffective [Unknown]
  - Drug interaction [Unknown]
  - Back disorder [Unknown]
  - Musculoskeletal discomfort [Unknown]
  - Arthropathy [Unknown]
  - Therapeutic response unexpected [Unknown]
  - Diarrhoea [Unknown]
  - Agitation [Unknown]
  - Migraine [Unknown]
  - Hangover [Unknown]
  - Pain [Unknown]
  - Chest pain [Unknown]
  - Dizziness [Unknown]
  - Therapeutic response unexpected [Unknown]
  - Pre-existing condition improved [Unknown]
